FAERS Safety Report 20704778 (Version 4)
Quarter: 2022Q4

REPORT INFORMATION
  Report Type: Spontaneous
  Country: FR (occurrence: FR)
  Receive Date: 20220413
  Receipt Date: 20221005
  Transmission Date: 20230113
  Serious: Yes (Hospitalization, Other)
  Sender: FDA-Public Use
  Company Number: FR-CELGENE-FRA-20211107135

PATIENT
  Age: 86 Year
  Sex: Female
  Weight: 56.6 kg

DRUGS (29)
  1. AZACITIDINE [Suspect]
     Active Substance: AZACITIDINE
     Indication: Myelodysplastic syndrome
     Dosage: 7 DAY WITHIN 9 CALENDAR DAY FOR EACH 28 DAY CYCLE
     Route: 058
     Dates: start: 20210830, end: 20211012
  2. AZACITIDINE [Suspect]
     Active Substance: AZACITIDINE
     Dosage: 75 MILLIGRAM/SQ. METER
     Route: 058
     Dates: start: 20210830, end: 20211130
  3. AZACITIDINE [Suspect]
     Active Substance: AZACITIDINE
     Dosage: DAYS 1-7 OF A 28 DAY CYCLE75 MILLIGRAM/SQ. METER
     Route: 058
     Dates: start: 20210830, end: 20220118
  4. AZACITIDINE [Suspect]
     Active Substance: AZACITIDINE
     Dosage: 7 DAY WITHIN 9 CALENDAR DAY FOR EACH 28 DAY CYCLE
     Route: 058
     Dates: start: 20211122
  5. AZACITIDINE [Suspect]
     Active Substance: AZACITIDINE
     Dosage: 115 MILLIGRAM, QD (115 MILLIGRAM)
     Route: 058
     Dates: start: 20211122
  6. AZACITIDINE [Suspect]
     Active Substance: AZACITIDINE
     Dosage: (7 DAYS WITHIN THE FIRST 9 CALENDAR DAYS)
     Route: 058
     Dates: start: 20220228
  7. AZACITIDINE [Suspect]
     Active Substance: AZACITIDINE
     Dosage: 75 MILLIGRAM/SQ. METER
     Route: 058
     Dates: start: 20220228
  8. AZACITIDINE [Suspect]
     Active Substance: AZACITIDINE
     Dosage: 115 MILLIGRAM, QD (115 MILLIGRAM)
     Route: 058
  9. VENETOCLAX [Suspect]
     Active Substance: VENETOCLAX
     Indication: Myelodysplastic syndrome
     Dosage: 14 DAYS ON, 14 DAYS OFF 400 MILLIGRAM
     Route: 048
     Dates: start: 20210830, end: 20211017
  10. VENETOCLAX [Suspect]
     Active Substance: VENETOCLAX
     Dosage: 14 DAYS ON ,14 DAYS OFF 400 MILLIGRAM
     Route: 048
     Dates: start: 20211122
  11. VENETOCLAX [Suspect]
     Active Substance: VENETOCLAX
     Dosage: UNK
     Route: 065
  12. LEVOTHYROXINE SODIUM [Concomitant]
     Active Substance: LEVOTHYROXINE SODIUM
     Indication: Hypothyroidism
     Dosage: 125 MICROGRAM, QD
     Route: 048
     Dates: start: 1980
  13. LEVOTHYROXINE SODIUM [Concomitant]
     Active Substance: LEVOTHYROXINE SODIUM
     Dosage: UNK
     Route: 048
  14. LEVOTHYROXINE SODIUM [Concomitant]
     Active Substance: LEVOTHYROXINE SODIUM
     Dosage: UNK, QD (125 MCG)
     Route: 048
     Dates: start: 1996
  15. JANUVIA [Concomitant]
     Active Substance: SITAGLIPTIN PHOSPHATE
     Indication: Diabetes mellitus
     Dosage: 100 MILLIGRAM, QD (1 IN 1 D)
     Route: 048
     Dates: start: 2010
  16. JANUVIA [Concomitant]
     Active Substance: SITAGLIPTIN PHOSPHATE
     Dosage: 1 DOSAGE FORM, QD (1 IN 1 DAY)
     Route: 048
  17. VALACYCLOVIR HYDROCHLORIDE [Concomitant]
     Active Substance: VALACYCLOVIR HYDROCHLORIDE
     Indication: Prophylaxis
     Dosage: 1000 MILLIGRAM, QD
     Route: 048
     Dates: start: 20210830
  18. VALACYCLOVIR HYDROCHLORIDE [Concomitant]
     Active Substance: VALACYCLOVIR HYDROCHLORIDE
     Indication: Antiviral prophylaxis
     Dosage: 500 MILLIGRAM, BID (2 IN 1 D)
     Route: 048
     Dates: start: 20210830
  19. VALACYCLOVIR HYDROCHLORIDE [Concomitant]
     Active Substance: VALACYCLOVIR HYDROCHLORIDE
     Dosage: 2 DOSAGE FORM, QD (2 IN 1 DAY)
     Route: 048
  20. VALACYCLOVIR HYDROCHLORIDE [Concomitant]
     Active Substance: VALACYCLOVIR HYDROCHLORIDE
     Dosage: 1000 MILLIGRAM, BID (2 IN 1 D)
     Route: 048
  21. FENOFIBRATE [Concomitant]
     Active Substance: FENOFIBRATE
     Indication: Hypertriglyceridaemia
     Dosage: 67 MILLIGRAM, QD (1 IN 1 D)
     Route: 048
  22. FENOFIBRATE [Concomitant]
     Active Substance: FENOFIBRATE
     Dosage: 1 DOSAGE FORM, QD (1 IN 1 DAY)
     Route: 048
  23. FENOFIBRATE [Concomitant]
     Active Substance: FENOFIBRATE
     Dosage: 67 MILLIGRAM, QD
     Route: 048
     Dates: start: 2010
  24. AMOXICILLIN [Concomitant]
     Active Substance: AMOXICILLIN
     Indication: Prophylaxis
     Dosage: 9 GRAM, QD
     Route: 048
     Dates: start: 20210830
  25. AMOXICILLIN [Concomitant]
     Active Substance: AMOXICILLIN
     Dosage: 3 GRAM, QD (1 IN 1 D)
     Route: 048
     Dates: start: 20210830
  26. AMOXICILLIN [Concomitant]
     Active Substance: AMOXICILLIN
     Dosage: 1 DOSAGE FORM, QD (1 IN 1 DAY)
     Route: 048
  27. METOCLOPRAMIDE [Concomitant]
     Active Substance: METOCLOPRAMIDE
     Indication: Prophylaxis of nausea and vomiting
     Dosage: 10 MILLIGRAM (1 AS REQUIRED)
     Route: 048
     Dates: start: 20211004
  28. ONDANSETRON [Concomitant]
     Active Substance: ONDANSETRON
     Indication: Prophylaxis of nausea and vomiting
     Dosage: 1000 MILLIGRAM
     Route: 065
     Dates: start: 20210830
  29. MONTMORILLONITE [Concomitant]
     Active Substance: MONTMORILLONITE
     Indication: Diarrhoea
     Dosage: 3 GRAM (1 AS REQUIRED)
     Route: 048

REACTIONS (3)
  - Febrile neutropenia [Recovered/Resolved]
  - Skin lesion [Recovered/Resolved]
  - Pyoderma gangrenosum [Recovered/Resolved]

NARRATIVE: CASE EVENT DATE: 20211104
